FAERS Safety Report 17198434 (Version 2)
Quarter: 2020Q1

REPORT INFORMATION
  Report Type: Spontaneous
  Country: PT (occurrence: PT)
  Receive Date: 20191225
  Receipt Date: 20200313
  Transmission Date: 20200409
  Serious: Yes (Death, Hospitalization, Other)
  Sender: FDA-Public Use
  Company Number: PT-AUROBINDO-AUR-APL-2019-107120

PATIENT
  Age: 74 Year
  Sex: Male

DRUGS (4)
  1. GENTAMICIN. [Suspect]
     Active Substance: GENTAMICIN
     Indication: INFECTION
     Dosage: UNK
     Route: 065
  2. CEFTRIAXONE. [Suspect]
     Active Substance: CEFTRIAXONE
     Indication: PRODUCT USED FOR UNKNOWN INDICATION
     Dosage: UNK
     Route: 065
  3. VANCOMYCIN [Suspect]
     Active Substance: VANCOMYCIN
     Indication: INFECTION
     Dosage: UNK
     Route: 065
  4. RIFAXIMIN. [Suspect]
     Active Substance: RIFAXIMIN
     Indication: INFECTION
     Dosage: UNK
     Route: 065

REACTIONS (12)
  - Nervous system disorder [Unknown]
  - Cerebral ischaemia [Unknown]
  - Pyrexia [Unknown]
  - Pain [Unknown]
  - Cardio-respiratory arrest [Unknown]
  - Intervertebral discitis [Unknown]
  - Psoas abscess [Unknown]
  - Endocarditis [Fatal]
  - Condition aggravated [Unknown]
  - Drug ineffective [Fatal]
  - Renal impairment [Unknown]
  - Respiratory disorder [Unknown]
